FAERS Safety Report 8162092-6 (Version None)
Quarter: 2012Q1

REPORT INFORMATION
  Report Type: 
  Country: None (occurrence: None)
  Receive Date: 20120224
  Receipt Date: 20110913
  Transmission Date: 20120608
  Serious: Yes (Hospitalization)
  Sender: FDA-Public Use
  Company Number: US-BRISTOL-MYERS SQUIBB COMPANY-15990898

PATIENT
  Age: 36 Year
  Sex: Male

DRUGS (3)
  1. INSULIN [Concomitant]
  2. METFORMIN HCL [Suspect]
     Route: 048
  3. GLUCOVANCE [Suspect]

REACTIONS (2)
  - LACTIC ACIDOSIS [None]
  - PANCREATITIS [None]
